FAERS Safety Report 9649659 (Version 3)
Quarter: 2014Q1

REPORT INFORMATION
  Report Type: Report from Study
  Country: US (occurrence: US)
  Receive Date: 20131028
  Receipt Date: 20140221
  Transmission Date: 20141002
  Serious: Yes (Hospitalization)
  Sender: FDA-Public Use
  Company Number: US-ACTELION-A-US2013-84367

PATIENT
  Age: 67 Year
  Sex: Male

DRUGS (2)
  1. TRACLEER [Suspect]
     Indication: PULMONARY ARTERIAL HYPERTENSION
     Dosage: UNK
     Route: 048
  2. ADCIRCA [Concomitant]

REACTIONS (11)
  - Haemorrhage [Unknown]
  - Syncope [Unknown]
  - Weight decreased [Unknown]
  - Bronchitis [Unknown]
  - Fall [Unknown]
  - Hypotension [Unknown]
  - Fatigue [Unknown]
  - Contusion [Unknown]
  - Dyspnoea [Unknown]
  - Weight fluctuation [Unknown]
  - Pain [Unknown]
